FAERS Safety Report 15880370 (Version 1)
Quarter: 2019Q1

REPORT INFORMATION
  Report Type: Spontaneous
  Country: US (occurrence: US)
  Receive Date: 20190128
  Receipt Date: 20190128
  Transmission Date: 20190417
  Serious: Yes (Disabling)
  Sender: FDA-Public Use
  Company Number: None

PATIENT
  Age: 28 Year
  Sex: Female
  Weight: 59.85 kg

DRUGS (1)
  1. LUPRON DEPOT [Suspect]
     Active Substance: LEUPROLIDE ACETATE
     Indication: ENDOMETRIOSIS
     Dosage: ?          QUANTITY:1 INJECTION(S);OTHER FREQUENCY:ONCE A MONTH;?
     Route: 030

REACTIONS (10)
  - Muscle disorder [None]
  - Arthralgia [None]
  - Bone pain [None]
  - Pain [None]
  - Memory impairment [None]
  - Myalgia [None]
  - Bone disorder [None]
  - Migraine [None]
  - Hot flush [None]
  - Peripheral swelling [None]

NARRATIVE: CASE EVENT DATE: 20120210
